FAERS Safety Report 24553239 (Version 1)
Quarter: 2024Q4

REPORT INFORMATION
  Report Type: Spontaneous
  Country: US (occurrence: US)
  Receive Date: 20241028
  Receipt Date: 20241028
  Transmission Date: 20250114
  Serious: Yes (Hospitalization, Other)
  Sender: NAARI PHARMA
  Company Number: US-NAARI PTE LIMITED-2024NP000054

PATIENT
  Age: 22 Year
  Sex: Female

DRUGS (1)
  1. DESOGESTREL AND ETHINYL ESTRADIOL [Suspect]
     Active Substance: DESOGESTREL\ETHINYL ESTRADIOL
     Indication: Oral contraception
     Dosage: 0.03/0.15MG DAILY
     Route: 048

REACTIONS (1)
  - Erythema multiforme [Recovered/Resolved]
